FAERS Safety Report 5403441-9 (Version None)
Quarter: 2007Q3

REPORT INFORMATION
  Report Type: 
  Country: None (occurrence: None)
  Receive Date: 20070713
  Receipt Date: 20070516
  Transmission Date: 20080115
  Serious: Yes (Hospitalization)
  Sender: FDA-Public Use
  Company Number: US-JNJFOC-20061103463

PATIENT
  Age: 31 Year
  Sex: Female
  Weight: 60.782 kg

DRUGS (4)
  1. ORTHO EVRA [Suspect]
     Indication: CONTRACEPTION
     Dosage: TRANSDERMAL
     Route: 062
     Dates: start: 20040216, end: 20040301
  2. PRILOSEC [Concomitant]
  3. MAALOX FAST BLOCKER [Concomitant]
  4. PAIN MEDICATION (ANALGESICS) [Concomitant]

REACTIONS (1)
  - PORTAL VEIN THROMBOSIS [None]
